FAERS Safety Report 9657361 (Version 3)
Quarter: 2013Q4

REPORT INFORMATION
  Report Type: Spontaneous
  Country: JP (occurrence: JP)
  Receive Date: 20131030
  Receipt Date: 20131127
  Transmission Date: 20140711
  Serious: Yes (Other)
  Sender: FDA-Public Use
  Company Number: JP-GLAXOSMITHKLINE-B0936798A

PATIENT
  Age: 70 Year
  Sex: Female

DRUGS (4)
  1. SERETIDE (50MCG/250MCG) [Suspect]
     Indication: ASTHMA
     Dosage: 250MCG TWICE PER DAY
     Route: 055
     Dates: start: 20130927, end: 201310
  2. CADUET [Concomitant]
     Indication: HYPERTENSION
     Dosage: 1IUAX PER DAY
     Route: 048
  3. BAYASPIRIN [Concomitant]
     Dosage: 100MG PER DAY
     Route: 048
  4. METHYCOBAL [Concomitant]
     Dosage: 250MCG PER DAY
     Route: 048

REACTIONS (1)
  - Purpura [Recovered/Resolved]
